FAERS Safety Report 21143898 (Version 1)
Quarter: 2022Q3

REPORT INFORMATION
  Report Type: Spontaneous
  Country: US (occurrence: US)
  Receive Date: 20220728
  Receipt Date: 20220728
  Transmission Date: 20221027
  Serious: No
  Sender: FDA-Public Use
  Company Number: US-ORGANON-O2207USA002138

PATIENT
  Age: 18 Year
  Sex: Female
  Weight: 61 kg

DRUGS (1)
  1. NEXPLANON [Suspect]
     Active Substance: ETONOGESTREL
     Indication: Contraception
     Dosage: 68 MILLIGRAM (MG) 1 IMPLANT, ONE EVERY THREE YEARS.
     Route: 059
     Dates: start: 20220509

REACTIONS (2)
  - Crying [Not Recovered/Not Resolved]
  - Depressed mood [Not Recovered/Not Resolved]

NARRATIVE: CASE EVENT DATE: 20220519
